FAERS Safety Report 4735726-3 (Version None)
Quarter: 2005Q3

REPORT INFORMATION
  Report Type: 
  Country: None (occurrence: None)
  Receive Date: 20050802
  Receipt Date: 20050726
  Transmission Date: 20060218
  Serious: Yes (Other)
  Sender: FDA-Public Use
  Company Number: BDI-007397

PATIENT
  Age: 9 Year
  Sex: Male

DRUGS (2)
  1. KINEVAC [Suspect]
     Indication: DIAGNOSTIC PROCEDURE
     Dosage: SY
     Dates: start: 20050726, end: 20050726
  2. TOPROL-XL [Concomitant]

REACTIONS (8)
  - CONVULSION [None]
  - DYSKINESIA [None]
  - FEELING ABNORMAL [None]
  - FLUSHING [None]
  - HYPERHIDROSIS [None]
  - LOSS OF CONSCIOUSNESS [None]
  - NAUSEA [None]
  - STARING [None]
